FAERS Safety Report 6519569-6 (Version None)
Quarter: 2009Q4

REPORT INFORMATION
  Report Type: 
  Country: None (occurrence: None)
  Receive Date: 20091228
  Receipt Date: 20091201
  Transmission Date: 20100525
  Serious: Yes (Hospitalization, Other)
  Sender: FDA-Public Use
  Company Number: US-JNJFOC-20091007124

PATIENT
  Sex: Female

DRUGS (2)
  1. NUCYNTA [Suspect]
     Indication: ARTHRITIS
     Route: 048
  2. NUCYNTA [Suspect]
     Indication: BACK PAIN
     Route: 048

REACTIONS (1)
  - ANGIOEDEMA [None]
